FAERS Safety Report 8727840 (Version 2)
Quarter: 2013Q2

REPORT INFORMATION
  Report Type: Spontaneous
  Country: US (occurrence: US)
  Receive Date: 20120816
  Receipt Date: 20130425
  Transmission Date: 20140414
  Serious: No
  Sender: FDA-Public Use
  Company Number: US-AMGEN-USASP2012039012

PATIENT
  Age: 66 Year
  Sex: Male
  Weight: 102.95 kg

DRUGS (12)
  1. NPLATE [Suspect]
     Indication: IDIOPATHIC THROMBOCYTOPENIC PURPURA
     Dosage: UNK
     Dates: start: 2010
  2. NPLATE [Suspect]
     Dosage: 100 MUG, QWK
     Dates: start: 201104, end: 201112
  3. NPLATE [Suspect]
     Dosage: 100 MUG, UNK
     Dates: start: 201112, end: 20120501
  4. NPLATE [Suspect]
     Dosage: 103 MUG, UNK
     Dates: end: 20120828
  5. EXCEDRIN [Concomitant]
  6. ATENOLOL [Concomitant]
     Dosage: 25 MG, QD
  7. NORVASC [Concomitant]
     Dosage: 5 MG, QD
  8. CLONIDINE [Concomitant]
  9. OXYCODONE [Concomitant]
     Dosage: 3 MG, TID
  10. LISINOPRIL [Concomitant]
     Dosage: 40 MG, QD
  11. CLOBETASOL [Concomitant]
  12. OMEPRAZOL                          /00661201/ [Concomitant]
     Dosage: 20 MG, QD

REACTIONS (4)
  - Platelet count decreased [Unknown]
  - Abdominal pain upper [Unknown]
  - Headache [Recovering/Resolving]
  - Abdominal pain [Unknown]
